FAERS Safety Report 19205863 (Version 1)
Quarter: 2021Q2

REPORT INFORMATION
  Report Type: Spontaneous
  Country: BN (occurrence: BN)
  Receive Date: 20210503
  Receipt Date: 20210503
  Transmission Date: 20210717
  Serious: Yes (Other)
  Sender: FDA-Public Use
  Company Number: NVSC2021BN091510

PATIENT
  Age: 60 Year
  Sex: Female

DRUGS (7)
  1. RIBOCICLIB. [Suspect]
     Active Substance: RIBOCICLIB
     Dosage: UNK
     Route: 065
     Dates: start: 202008, end: 202009
  2. RIBOCICLIB. [Suspect]
     Active Substance: RIBOCICLIB
     Indication: BREAST CANCER METASTATIC
     Dosage: UNK
     Route: 065
     Dates: start: 201907
  3. ERIBULIN [Suspect]
     Active Substance: ERIBULIN
     Indication: HORMONE RECEPTOR POSITIVE BREAST CANCER
     Dosage: UNK (5 CYLES, ONGOING) IN 2021
     Route: 065
  4. FULVESTRANT. [Suspect]
     Active Substance: FULVESTRANT
     Indication: BREAST CANCER METASTATIC
     Dosage: UNK
     Route: 065
     Dates: start: 202008, end: 202009
  5. FULVESTRANT. [Suspect]
     Active Substance: FULVESTRANT
     Dosage: UNK (2 MONTHS ONLY)
     Route: 065
     Dates: start: 202010
  6. LETROZOLE. [Suspect]
     Active Substance: LETROZOLE
     Indication: BREAST CANCER METASTATIC
     Dosage: UNK
     Route: 065
     Dates: start: 201907
  7. PIQRAY [Suspect]
     Active Substance: ALPELISIB
     Indication: BREAST CANCER METASTATIC
     Dosage: UNK (2 MONTHS ONLY)
     Route: 065
     Dates: start: 202010

REACTIONS (7)
  - Hyperglycaemia [Unknown]
  - Metastases to bone [Unknown]
  - Oxygen saturation decreased [Unknown]
  - Dyspnoea [Unknown]
  - Hepatic function abnormal [Unknown]
  - Pleural effusion [Unknown]
  - Metastases to lung [Unknown]
